FAERS Safety Report 5253332-1 (Version None)
Quarter: 2007Q1

REPORT INFORMATION
  Report Type: 
  Country: None (occurrence: None)
  Receive Date: 20070301
  Receipt Date: 20070226
  Transmission Date: 20070707
  Serious: Yes (Hospitalization, Other)
  Sender: FDA-Public Use
  Company Number: CHWYE594808FEB07

PATIENT
  Age: 76 Year
  Sex: Female

DRUGS (5)
  1. EFFEXOR [Suspect]
     Indication: DEPRESSION
     Route: 048
     Dates: start: 20070201, end: 20070206
  2. AMLODIPINE [Concomitant]
     Dosage: 10 MG PER DAY
  3. METOPROLOL SUCCINATE [Concomitant]
     Dosage: 50 MG PER DAY
  4. ZESTORETIC [Concomitant]
     Dosage: UNKNOWN
  5. TEMESTA [Concomitant]
     Route: 048

REACTIONS (2)
  - ABDOMINAL DISCOMFORT [None]
  - HYPONATRAEMIA [None]
